FAERS Safety Report 7217682-1 (Version None)
Quarter: 2011Q1

REPORT INFORMATION
  Report Type: 
  Country: None (occurrence: None)
  Receive Date: 20110110
  Receipt Date: 20110106
  Transmission Date: 20110831
  Serious: Yes (Life-Threatening)
  Sender: FDA-Public Use
  Company Number: FR-ROCHE-751973

PATIENT
  Sex: Female

DRUGS (4)
  1. ROCEPHIN [Suspect]
     Indication: SPUTUM PURULENT
     Route: 042
     Dates: start: 20100903, end: 20100903
  2. WYSTAMM [Concomitant]
  3. ZOLPIDEM [Concomitant]
  4. SERETIDE DISKUS [Concomitant]

REACTIONS (4)
  - RESPIRATORY ACIDOSIS [None]
  - RESPIRATORY DISTRESS [None]
  - HYPERCAPNIA [None]
  - BRONCHOSPASM [None]
